FAERS Safety Report 5243744-4 (Version None)
Quarter: 2007Q1

REPORT INFORMATION
  Report Type: 
  Country: None (occurrence: None)
  Receive Date: 20070220
  Receipt Date: 20070220
  Transmission Date: 20070707
  Serious: Yes (Other)
  Sender: FDA-Public Use
  Company Number: None

PATIENT
  Sex: Female
  Weight: 74.41 kg

DRUGS (4)
  1. ONDANSETRON INH 2 MG/ML BAXTER [Suspect]
     Indication: VOMITING
     Dosage: 0.75 MG EVERY HOUR OVER HR SQ
     Route: 058
     Dates: start: 20061013, end: 20070209
  2. ZANTAC [Concomitant]
  3. MAALOX PLUS [Concomitant]
  4. ACETAMINOPHEN [Concomitant]

REACTIONS (1)
  - CELLULITIS [None]
